FAERS Safety Report 5303626-6 (Version None)
Quarter: 2007Q2

REPORT INFORMATION
  Report Type: 
  Country: None (occurrence: None)
  Receive Date: 20070420
  Receipt Date: 20070410
  Transmission Date: 20071010
  Serious: Yes (Life-Threatening, Hospitalization, Disabling, Other)
  Sender: FDA-Public Use
  Company Number: JP-PFIZER INC-2007019881

PATIENT
  Sex: Male
  Weight: 35.9 kg

DRUGS (11)
  1. CARDENALIN [Suspect]
     Indication: HYPERTENSION
     Route: 048
  2. CARDENALIN [Suspect]
     Route: 048
  3. ADALAT [Suspect]
     Indication: HYPERTENSION
     Route: 048
     Dates: start: 20020201, end: 20070301
  4. ZYLORIC ^FRESENIUS^ [Suspect]
     Indication: HYPERURICAEMIA
     Route: 048
     Dates: start: 20020201, end: 20070301
  5. INCREMIN [Concomitant]
     Indication: ANAEMIA
     Route: 048
  6. GASTER [Concomitant]
     Indication: GASTRITIS
     Route: 048
  7. PURSENNID [Concomitant]
     Indication: CONSTIPATION
     Route: 048
  8. LASIX [Concomitant]
     Route: 048
  9. KREMEZIN [Concomitant]
     Indication: AZOTAEMIA
     Route: 048
  10. HALCION [Concomitant]
     Indication: INSOMNIA
     Route: 048
  11. CALCIUM CARBONATE [Concomitant]
     Indication: HYPERPHOSPHATAEMIA
     Route: 048

REACTIONS (4)
  - EOSINOPHIL COUNT INCREASED [None]
  - PULMONARY HAEMORRHAGE [None]
  - PULMONARY OEDEMA [None]
  - RENAL FAILURE ACUTE [None]
